FAERS Safety Report 22113722 (Version 3)
Quarter: 2023Q2

REPORT INFORMATION
  Report Type: Spontaneous
  Country: JP (occurrence: None)
  Receive Date: 20230320
  Receipt Date: 20230612
  Transmission Date: 20230722
  Serious: Yes (Death)
  Sender: FDA-Public Use
  Company Number: 2023A064732

PATIENT
  Age: 81 Year
  Sex: Female

DRUGS (9)
  1. ONDEXXYA [Suspect]
     Active Substance: ANDEXANET ALFA
     Indication: Mediastinal haemorrhage
     Dosage: DOSE UNKNOWN
     Route: 042
     Dates: start: 20230308, end: 20230308
  2. IRBESARTAN [Concomitant]
     Active Substance: IRBESARTAN
  3. BISOPROLOL [Concomitant]
     Active Substance: BISOPROLOL
  4. FAMOTIDINE [Concomitant]
     Active Substance: FAMOTIDINE
  5. EDOXABAN TOSYLATE [Concomitant]
     Active Substance: EDOXABAN TOSYLATE
  6. MAGNESIUM OXIDE [Concomitant]
     Active Substance: MAGNESIUM OXIDE
  7. CLOTIAZEPAM [Concomitant]
     Active Substance: CLOTIAZEPAM
  8. ACETAMINOPHEN [Concomitant]
     Active Substance: ACETAMINOPHEN
  9. HEPARINOID [Concomitant]

REACTIONS (3)
  - Acute hepatic failure [Fatal]
  - Gallbladder necrosis [Not Recovered/Not Resolved]
  - Coagulation time prolonged [Recovering/Resolving]

NARRATIVE: CASE EVENT DATE: 20230308
